FAERS Safety Report 8766902 (Version 1)
Quarter: 2012Q4

REPORT INFORMATION
  Report Type: 
  Country: US (occurrence: US)
  Receive Date: 20120904
  Receipt Date: 20120904
  Transmission Date: 20130627
  Serious: Yes (Other)
  Sender: FDA-Public Use
  Company Number: US-JNJFOC-20120813977

PATIENT
  Age: 59 Year
  Sex: Male

DRUGS (1)
  1. NICOTINE POLACRILEX GUM [Suspect]
     Indication: SMOKING CESSATION THERAPY
     Dosage: 4 mg gum, 10 pieces per day
     Route: 048
     Dates: start: 1996

REACTIONS (2)
  - Nicotine dependence [Not Recovered/Not Resolved]
  - Intentional drug misuse [Unknown]
